FAERS Safety Report 5836477-4 (Version None)
Quarter: 2008Q3

REPORT INFORMATION
  Report Type: 
  Country: None (occurrence: None)
  Receive Date: 20080806
  Receipt Date: 20080806
  Transmission Date: 20090109
  Serious: Yes (Hospitalization)
  Sender: FDA-Public Use
  Company Number: None

PATIENT
  Age: 78 Year
  Sex: Female
  Weight: 70.8 kg

DRUGS (35)
  1. CLOFARABINE, 5MG, GENZYME, IND # 100992 [Suspect]
     Indication: 5Q MINUS SYNDROME
     Dosage: 5MG QD X 10 DAYS PO
     Route: 048
     Dates: start: 20080529, end: 20080607
  2. SYNTHROID [Concomitant]
  3. SINGULAIR [Concomitant]
  4. LIPITOR [Concomitant]
  5. COUMADIN [Concomitant]
  6. GLYBURIDE [Concomitant]
  7. REGLAN [Concomitant]
  8. LASIX [Concomitant]
  9. POTASSIUM CHLORIDE [Concomitant]
  10. GABAPENTIN [Concomitant]
  11. PREVACID [Concomitant]
  12. FOLIC ACID [Concomitant]
  13. LORTAB [Concomitant]
  14. AMIODARONE HCL [Concomitant]
  15. CITALOPRAM HYDROBROMIDE [Concomitant]
  16. VALTREX [Concomitant]
  17. CLOTRIMAZOLE [Concomitant]
  18. LANOXIN [Concomitant]
  19. ATROVENT [Concomitant]
  20. ZOFRAN [Concomitant]
  21. OCEAN NASAL SPRAY [Concomitant]
  22. ULTRAM [Concomitant]
  23. GI COCKTAIL [Concomitant]
  24. BENADRYL [Concomitant]
  25. NOVOLOG [Concomitant]
  26. LANTUS [Concomitant]
  27. REGULAR INSULIN [Concomitant]
  28. NOVOLIN R [Concomitant]
  29. ZESTRIL [Concomitant]
  30. MAGNESIUM SULFATE [Concomitant]
  31. LOPRESSOR [Concomitant]
  32. NYSTATIN [Concomitant]
  33. TYLENOL [Concomitant]
  34. SENNA [Concomitant]
  35. ALBUTEROL [Concomitant]

REACTIONS (30)
  - ANOREXIA [None]
  - BONE MARROW FAILURE [None]
  - CARDIAC FAILURE CONGESTIVE [None]
  - CARDIOACTIVE DRUG LEVEL INCREASED [None]
  - CEREBRAL INFARCTION [None]
  - CEREBRAL ISCHAEMIA [None]
  - EMBOLIC STROKE [None]
  - ESCHERICHIA URINARY TRACT INFECTION [None]
  - EXTRASYSTOLES [None]
  - FAILURE TO THRIVE [None]
  - HUMERUS FRACTURE [None]
  - LIP ULCERATION [None]
  - LYMPHADENOPATHY [None]
  - MITRAL VALVE CALCIFICATION [None]
  - MITRAL VALVE INCOMPETENCE [None]
  - MUCOSAL INFLAMMATION [None]
  - NAUSEA [None]
  - ORAL CANDIDIASIS [None]
  - PANCYTOPENIA [None]
  - PHARYNGEAL ERYTHEMA [None]
  - PLEURAL EFFUSION [None]
  - PNEUMONIA [None]
  - PULMONARY HYPERTENSION [None]
  - SPINAL COMPRESSION FRACTURE [None]
  - TACHYCARDIA [None]
  - THERAPEUTIC RESPONSE DECREASED [None]
  - TRICUSPID VALVE INCOMPETENCE [None]
  - UNEVALUABLE EVENT [None]
  - URINARY TRACT INFECTION ENTEROCOCCAL [None]
  - VOMITING [None]
